FAERS Safety Report 15234351 (Version 1)
Quarter: 2018Q4

REPORT INFORMATION
  Report Type: Spontaneous
  Country: US (occurrence: US)
  Receive Date: 20180803
  Receipt Date: 20180803
  Transmission Date: 20190204
  Serious: Yes (Other)
  Sender: FDA-Public Use
  Company Number: US-HETERO CORPORATE-HET2018US00718

PATIENT
  Age: 72 Year
  Sex: Female

DRUGS (3)
  1. PROSTACYCLIN [Suspect]
     Active Substance: EPOPROSTENOL
     Indication: PULMONARY ARTERIAL HYPERTENSION
     Dosage: UNK (6 NG/KG/MIN)
     Route: 042
  2. SILDENAFIL. [Suspect]
     Active Substance: SILDENAFIL
     Indication: PULMONARY ARTERIAL HYPERTENSION
     Dosage: 20 MG, TID
     Route: 065
  3. PROSTACYCLIN [Suspect]
     Active Substance: EPOPROSTENOL
     Dosage: UNK (1 NG/KG/MIN EVERY 30 MINUTES UNTIL THE GOAL RATE OF 6 NG/KG/MIN)

REACTIONS (2)
  - Pulmonary oedema [Unknown]
  - Off label use [Unknown]
